FAERS Safety Report 21018275 (Version 1)
Quarter: 2022Q2

REPORT INFORMATION
  Report Type: Spontaneous
  Country: US (occurrence: None)
  Receive Date: 20220628
  Receipt Date: 20220628
  Transmission Date: 20220721
  Serious: Yes (unspecified)
  Sender: FDA-Public Use
  Company Number: None

PATIENT
  Age: 53 Year
  Sex: Male
  Weight: 112 kg

DRUGS (1)
  1. GAZYVA [Suspect]
     Active Substance: OBINUTUZUMAB
     Indication: Chronic lymphocytic leukaemia
     Dosage: OTHER FREQUENCY : INFUSION WEEKLY;?
     Route: 042
     Dates: start: 20220627, end: 20220627

REACTIONS (6)
  - Blood pressure decreased [None]
  - Vomiting [None]
  - Chills [None]
  - Respiratory rate decreased [None]
  - Throat irritation [None]
  - Oral pruritus [None]

NARRATIVE: CASE EVENT DATE: 20220627
